FAERS Safety Report 17951869 (Version 1)
Quarter: 2020Q2

REPORT INFORMATION
  Report Type: Spontaneous
  Country: GB (occurrence: GB)
  Receive Date: 20200626
  Receipt Date: 20200626
  Transmission Date: 20200714
  Serious: Yes (Other)
  Sender: FDA-Public Use
  Company Number: NVSC2020GB174110

PATIENT
  Age: 38 Year
  Sex: Male
  Weight: 63.5 kg

DRUGS (2)
  1. FEXOFENADINE HYDROCHLORIDE. [Concomitant]
     Active Substance: FEXOFENADINE HYDROCHLORIDE
     Indication: PRODUCT USED FOR UNKNOWN INDICATION
     Dosage: UNK
     Route: 065
  2. MOMETASONE FUROATE. [Suspect]
     Active Substance: MOMETASONE FUROATE
     Indication: ECZEMA
     Dosage: UNK (0.1% LIBERALLY)
     Route: 061
     Dates: start: 20190501, end: 20200216

REACTIONS (16)
  - Dermatitis atopic [Unknown]
  - Blister [Unknown]
  - Eczema [Unknown]
  - Immune system disorder [Unknown]
  - Pruritus [Unknown]
  - Flushing [Not Recovered/Not Resolved]
  - Withdrawal syndrome [Unknown]
  - Skin atrophy [Unknown]
  - Erythema [Unknown]
  - Skin weeping [Unknown]
  - Skin exfoliation [Unknown]
  - Insomnia [Unknown]
  - Dry skin [Unknown]
  - Swelling [Unknown]
  - Neuralgia [Recovering/Resolving]
  - Steroid dependence [Unknown]

NARRATIVE: CASE EVENT DATE: 20200216
